FAERS Safety Report 9006816 (Version 1)
Quarter: 2013Q1

REPORT INFORMATION
  Report Type: Report from Study
  Country: DE (occurrence: DE)
  Receive Date: 20130110
  Receipt Date: 20130110
  Transmission Date: 20140127
  Serious: Yes (Hospitalization)
  Sender: FDA-Public Use
  Company Number: PHHY2013DE001903

PATIENT
  Sex: Male

DRUGS (11)
  1. FTY 720 [Suspect]
     Indication: MULTIPLE SCLEROSIS
     Dosage: 0.5 MG, QD
     Route: 048
     Dates: start: 20111227
  2. PANTOZOL [Concomitant]
     Dosage: 20 MG, UNK
  3. MIRTAZAPINE [Concomitant]
     Dosage: 45 MG, UNK
  4. ESPA DORM [Concomitant]
     Dosage: 7.5 MG, UNK
  5. DELTARAN [Concomitant]
     Dosage: 400 MG, UNK
  6. THYRONAJOD [Concomitant]
     Dosage: 125 ?G
  7. AMLODIPINE [Concomitant]
     Dosage: 5 MG, UNK
  8. BISOHEXAL [Concomitant]
     Dosage: 5 MG, UNK
  9. MAGNESIUM [Concomitant]
     Dosage: 100 MG, UNK
  10. NITROFURANTOIN [Concomitant]
     Dosage: 100 MG, UNK
  11. METHIONINE [Concomitant]
     Dosage: 1000 MG, UNK

REACTIONS (1)
  - Anal abscess [Not Recovered/Not Resolved]
